FAERS Safety Report 8504190 (Version 2)
Quarter: 2013Q1

REPORT INFORMATION
  Report Type: Report from Study
  Country: US (occurrence: US)
  Receive Date: 20120411
  Receipt Date: 20130301
  Transmission Date: 20140127
  Serious: Yes (Other)
  Sender: FDA-Public Use
  Company Number: US-ROCHE-1056402

PATIENT
  Sex: Male

DRUGS (8)
  1. RANIBIZUMAB [Suspect]
     Indication: AGE-RELATED MACULAR DEGENERATION
     Route: 050
     Dates: start: 20090915
  2. RANIBIZUMAB [Suspect]
     Route: 050
     Dates: start: 20091019
  3. RANIBIZUMAB [Suspect]
     Route: 050
     Dates: start: 20091102
  4. RANIBIZUMAB [Suspect]
     Dosage: BILATERALLY
     Route: 050
     Dates: start: 20100215
  5. RANIBIZUMAB [Suspect]
     Dosage: BILATERALLY
     Route: 050
     Dates: start: 20100308
  6. RANIBIZUMAB [Suspect]
     Dosage: BILATERALLY
     Route: 050
     Dates: start: 20100412
  7. GATIFLO [Concomitant]
     Route: 065
     Dates: start: 200909, end: 201004
  8. VISUDYNE [Concomitant]
     Route: 065
     Dates: start: 20091106

REACTIONS (2)
  - Inappropriate schedule of drug administration [Unknown]
  - Retinal haemorrhage [Recovered/Resolved]
